FAERS Safety Report 4751017-9 (Version None)
Quarter: 2005Q3

REPORT INFORMATION
  Report Type: 
  Country: None (occurrence: None)
  Receive Date: 20050824
  Receipt Date: 20050613
  Transmission Date: 20060218
  Serious: Yes (Life-Threatening, Congenital Anomaly)
  Sender: FDA-Public Use
  Company Number: GB-RB-1742-2005

PATIENT
  Sex: Female
  Weight: 3968 kg

DRUGS (2)
  1. BUPRENORPHINE HCL [Suspect]
     Indication: DRUG DEPENDENCE
     Dosage: MOTHER : 4 YEARS OF TREAMENT THE SUBUTEX TREATMENT  IS CONTINUING BY THE MOTHER
     Route: 064
  2. ACETAMINOPHEN [Concomitant]
     Indication: DRUG USE FOR UNKNOWN INDICATION
     Dosage: UNKNOWN DOSAGE
     Route: 065

REACTIONS (4)
  - ATRIAL SEPTAL DEFECT [None]
  - CYANOSIS [None]
  - MATERNAL DRUGS AFFECTING FOETUS [None]
  - VENTRICULAR HYPERTROPHY [None]
